FAERS Safety Report 8301595-8 (Version None)
Quarter: 2012Q2

REPORT INFORMATION
  Report Type: 
  Country: None (occurrence: None)
  Receive Date: 20120420
  Receipt Date: 20120414
  Transmission Date: 20120825
  Serious: Yes (Hospitalization)
  Sender: FDA-Public Use
  Company Number: US-ABBOTT-12P-163-0926378-00

PATIENT
  Sex: Male
  Weight: 94.432 kg

DRUGS (3)
  1. HUMIRA [Suspect]
  2. HUMIRA [Suspect]
     Indication: PSORIASIS
     Dates: start: 20120406, end: 20120406
  3. HUMIRA [Suspect]
     Dates: start: 20120413, end: 20120413

REACTIONS (7)
  - NAUSEA [None]
  - PSORIASIS [None]
  - SENSATION OF PRESSURE [None]
  - PYREXIA [None]
  - CHILLS [None]
  - PARAESTHESIA [None]
  - AXILLARY MASS [None]
